FAERS Safety Report 6845593-X (Version None)
Quarter: 2010Q3

REPORT INFORMATION
  Report Type: 
  Country: None (occurrence: None)
  Receive Date: 20100715
  Receipt Date: 20070824
  Transmission Date: 20110219
  Serious: No
  Sender: FDA-Public Use
  Company Number: US-PFIZER INC-2007072078

PATIENT
  Sex: Female
  Weight: 72.6 kg

DRUGS (5)
  1. CHANTIX [Suspect]
     Indication: SMOKING CESSATION THERAPY
     Route: 048
     Dates: start: 20070601, end: 20070801
  2. ANTIHYPERTENSIVES [Concomitant]
  3. INSULIN [Concomitant]
  4. ANTIDEPRESSANTS [Concomitant]
  5. ACETYLSALICYLIC ACID [Concomitant]

REACTIONS (6)
  - ABNORMAL DREAMS [None]
  - DISORIENTATION [None]
  - FATIGUE [None]
  - INSOMNIA [None]
  - SLEEP TERROR [None]
  - TERMINAL INSOMNIA [None]
